FAERS Safety Report 5167239-1 (Version None)
Quarter: 2006Q4

REPORT INFORMATION
  Report Type: 
  Country: None (occurrence: None)
  Receive Date: 20061129
  Receipt Date: 20061115
  Transmission Date: 20070319
  Serious: Yes (Hospitalization)
  Sender: FDA-Public Use
  Company Number: 02100-JPN-06-0016

PATIENT
  Age: 81 Year
  Sex: Female

DRUGS (7)
  1. CILOSTAZOL [Suspect]
     Dosage: 200 MG ORAL
     Route: 048
     Dates: start: 20060110, end: 20060112
  2. ASPIRIN [Suspect]
     Dosage: 100 MG, ORAL
     Route: 048
     Dates: start: 20060110, end: 20060112
  3. HEPARIN SODIUM INJECTION [Suspect]
     Dosage: 10 ML IV NOT SPEC
     Route: 042
     Dates: start: 20060104, end: 20060112
  4. ANTIDIABETIC AGENT [Concomitant]
  5. ISOSORBIDE DINITRATE [Concomitant]
  6. CARPERITIDE (GENETICAL RECOMBINATION) [Concomitant]
  7. TICLOPIDINE HYDROCHLORIDE [Concomitant]

REACTIONS (4)
  - HYPOAESTHESIA [None]
  - MUSCLE HAEMORRHAGE [None]
  - PAIN [None]
  - PNEUMONIA ASPIRATION [None]
